FAERS Safety Report 10664006 (Version 1)
Quarter: 2014Q4

REPORT INFORMATION
  Report Type: Spontaneous
  Country: US (occurrence: None)
  Receive Date: 20141218
  Receipt Date: 20141218
  Transmission Date: 20150529
  Serious: No
  Sender: FDA-Public Use
  Company Number: None

PATIENT
  Sex: Female

DRUGS (1)
  1. BSA CLONED INSULIN [Suspect]
     Active Substance: INSULIN NOS

REACTIONS (6)
  - Drug administration error [None]
  - Economic problem [None]
  - Product quality issue [None]
  - Diabetes mellitus inadequate control [None]
  - Product substitution issue [None]
  - Drug effect decreased [None]
